FAERS Safety Report 8789910 (Version 2)
Quarter: 2012Q4

REPORT INFORMATION
  Report Type: 
  Country: TH (occurrence: TH)
  Receive Date: 20120917
  Receipt Date: 20120926
  Transmission Date: 20130627
  Serious: Yes (Death)
  Sender: FDA-Public Use
  Company Number: TH-PFIZER INC-2012225867

PATIENT
  Age: 66 Year
  Sex: Male

DRUGS (2)
  1. SUTENT [Suspect]
     Indication: METASTATIC RENAL CELL CARCINOMA
     Dosage: 50 mg, 1x/day
     Route: 048
  2. SUTENT [Suspect]
     Dosage: 25 mg, 1x/day
     Route: 048

REACTIONS (3)
  - Renal failure acute [Fatal]
  - Red blood cell count decreased [Unknown]
  - Decreased appetite [Unknown]
